FAERS Safety Report 6647901-1 (Version None)
Quarter: 2010Q1

REPORT INFORMATION
  Report Type: 
  Country: None (occurrence: None)
  Receive Date: 20100318
  Receipt Date: 20100305
  Transmission Date: 20100710
  Serious: Yes (Hospitalization, Other)
  Sender: FDA-Public Use
  Company Number: 006415

PATIENT
  Sex: Male
  Weight: 80 kg

DRUGS (5)
  1. ROTIGOTINE (ROTIGOTINE) [Suspect]
     Indication: PARKINSON'S DISEASE
     Dosage: (2 MG QD TRANSDERMAL), (4 MG QD TRANSDERMAL), (6 MG QD TRANSDERMAL), (8 MG  QD TRANSDERMAL)
     Route: 062
     Dates: start: 20080408, end: 20080414
  2. ROTIGOTINE (ROTIGOTINE) [Suspect]
     Indication: PARKINSON'S DISEASE
     Dosage: (2 MG QD TRANSDERMAL), (4 MG QD TRANSDERMAL), (6 MG QD TRANSDERMAL), (8 MG  QD TRANSDERMAL)
     Route: 062
     Dates: start: 20080415, end: 20080421
  3. ROTIGOTINE (ROTIGOTINE) [Suspect]
     Indication: PARKINSON'S DISEASE
     Dosage: (2 MG QD TRANSDERMAL), (4 MG QD TRANSDERMAL), (6 MG QD TRANSDERMAL), (8 MG  QD TRANSDERMAL)
     Route: 062
     Dates: start: 20080422, end: 20090810
  4. ROTIGOTINE (ROTIGOTINE) [Suspect]
     Indication: PARKINSON'S DISEASE
     Dosage: (2 MG QD TRANSDERMAL), (4 MG QD TRANSDERMAL), (6 MG QD TRANSDERMAL), (8 MG  QD TRANSDERMAL)
     Route: 062
     Dates: start: 20090811
  5. DICLOFENAC [Concomitant]

REACTIONS (1)
  - OSTEOARTHRITIS [None]
